FAERS Safety Report 6813750-4 (Version None)
Quarter: 2010Q3

REPORT INFORMATION
  Report Type: 
  Country: None (occurrence: None)
  Receive Date: 20100701
  Receipt Date: 20100625
  Transmission Date: 20110219
  Serious: Yes (Death, Hospitalization)
  Sender: FDA-Public Use
  Company Number: US-AMGEN-QUU410990

PATIENT
  Sex: Female
  Weight: 86 kg

DRUGS (3)
  1. NPLATE [Suspect]
     Indication: IDIOPATHIC THROMBOCYTOPENIC PURPURA
     Route: 058
     Dates: start: 20100422
  2. PREDNISONE TAB [Concomitant]
     Dates: start: 20100420
  3. IMMU-G [Concomitant]
     Route: 042
     Dates: start: 20100420

REACTIONS (1)
  - CEREBRAL HAEMORRHAGE [None]
